FAERS Safety Report 9171150 (Version 1)
Quarter: 2013Q1

REPORT INFORMATION
  Report Type: Spontaneous
  Country: BE (occurrence: None)
  Receive Date: 20130315
  Receipt Date: 20130315
  Transmission Date: 20140127
  Serious: Yes (Death, Hospitalization)
  Sender: FDA-Public Use
  Company Number: NSR_01063_2013

PATIENT
  Age: 65 Year
  Sex: Female

DRUGS (2)
  1. VENLAFAXINE [Suspect]
     Indication: PRODUCT USED FOR UNKNOWN INDICATION
     Dosage: (7000 MG, 1X [NOT THE PRESCRIBED AMOUNT])
  2. LORAZEPAM [Suspect]
     Indication: PRODUCT USED FOR UNKNOWN INDICATION
     Dosage: (40 MG 1X, [NOT THE PRESCRIBED AMOUNT])

REACTIONS (7)
  - Somnolence [None]
  - Coma [None]
  - Cardiogenic shock [None]
  - Hypotension [None]
  - Blood lactic acid increased [None]
  - Blood creatinine increased [None]
  - Electrocardiogram QRS complex prolonged [None]
